FAERS Safety Report 5678483-9 (Version None)
Quarter: 2008Q1

REPORT INFORMATION
  Report Type: 
  Country: None (occurrence: None)
  Receive Date: 20080325
  Receipt Date: 20080313
  Transmission Date: 20080703
  Serious: Yes (Disabling)
  Sender: FDA-Public Use
  Company Number: FR-BRISTOL-MYERS SQUIBB COMPANY-14100077

PATIENT
  Age: 67 Year
  Sex: Female

DRUGS (6)
  1. PRAVASTATINE WINTHROP [Suspect]
     Indication: HYPERCHOLESTEROLAEMIA
     Dosage: TABLETS.
     Route: 048
     Dates: start: 20080221, end: 20080221
  2. PRAVASTATINE WINTHROP [Suspect]
     Indication: HYPERTRIGLYCERIDAEMIA
     Dosage: TABLETS.
     Route: 048
     Dates: start: 20080221, end: 20080221
  3. PRAVASTATINE WINTHROP [Suspect]
     Indication: HYPERLIPIDAEMIA
     Dosage: TABLETS.
     Route: 048
     Dates: start: 20080221, end: 20080221
  4. LEVOTHYROXINE SODIUM [Concomitant]
     Indication: HYPOTHYROIDISM
     Route: 048
  5. CHONDROSULF [Concomitant]
     Route: 048
  6. CHONDROSTEO [Concomitant]
     Indication: OSTEOPOROSIS

REACTIONS (10)
  - ASTHENIA [None]
  - BLOOD PRESSURE DECREASED [None]
  - DISABILITY [None]
  - MALAISE [None]
  - MUSCLE SPASMS [None]
  - MYALGIA [None]
  - OEDEMA PERIPHERAL [None]
  - PYREXIA [None]
  - RASH ERYTHEMATOUS [None]
  - WEIGHT DECREASED [None]
